FAERS Safety Report 9413611 (Version 2)
Quarter: 2013Q3

REPORT INFORMATION
  Report Type: Spontaneous
  Country: US (occurrence: US)
  Receive Date: 20130722
  Receipt Date: 20130828
  Transmission Date: 20140515
  Serious: No
  Sender: FDA-Public Use
  Company Number: US-PFIZER INC-2013213225

PATIENT
  Age: 50 Year
  Sex: Female
  Weight: 61.22 kg

DRUGS (4)
  1. NEURONTIN [Suspect]
     Indication: HERPES ZOSTER
     Dosage: 100 MG, 3X/DAY
     Route: 048
     Dates: start: 20130712, end: 201307
  2. NEURONTIN [Suspect]
     Dosage: 300 MG, 3X/DAY
     Route: 048
     Dates: start: 201307
  3. VALTREX [Suspect]
     Indication: HERPES ZOSTER
     Dosage: 1 G, 3X/DAY
     Route: 048
     Dates: start: 20130712
  4. FISH OIL [Concomitant]
     Dosage: UNK

REACTIONS (2)
  - Skin hyperpigmentation [Not Recovered/Not Resolved]
  - Hormone level abnormal [Unknown]
